FAERS Safety Report 8835973 (Version 1)
Quarter: 2012Q4

REPORT INFORMATION
  Report Type: 
  Country: US (occurrence: US)
  Receive Date: 20121011
  Receipt Date: 20121011
  Transmission Date: 20130627
  Serious: No
  Sender: FDA-Public Use
  Company Number: US-PFIZER INC-2012250770

PATIENT
  Age: 30 Year
  Sex: Female
  Weight: 49.43 kg

DRUGS (5)
  1. VENLAFAXINE [Suspect]
     Indication: ANXIETY
     Dosage: UNK
     Dates: start: 20120906
  2. VENLAFAXINE [Suspect]
     Indication: DEPRESSION
  3. KLONOPIN [Concomitant]
     Indication: ANXIETY
     Dosage: UNK
  4. EFFEXOR XR [Suspect]
     Indication: ANXIETY
     Dosage: 25 mg, 3x/day
     Route: 048
     Dates: start: 2001, end: 20120905
  5. EFFEXOR XR [Suspect]
     Indication: DEPRESSION

REACTIONS (4)
  - Blood cholesterol increased [Unknown]
  - Diarrhoea [Not Recovered/Not Resolved]
  - Depression [Not Recovered/Not Resolved]
  - Anxiety [Not Recovered/Not Resolved]
